FAERS Safety Report 9367528 (Version 1)
Quarter: 2013Q2

REPORT INFORMATION
  Report Type: Spontaneous
  Country: US (occurrence: US)
  Receive Date: 20130625
  Receipt Date: 20130625
  Transmission Date: 20140414
  Serious: No
  Sender: FDA-Public Use
  Company Number: US-ASTELLAS-2012US007296

PATIENT
  Age: 78 Year
  Sex: Female
  Weight: 57 kg

DRUGS (3)
  1. VESICARE [Suspect]
     Indication: HYPERTONIC BLADDER
     Dosage: 5 MG, UID/QD
     Route: 048
     Dates: start: 201208
  2. ADVAIR [Concomitant]
     Indication: ASTHMA
     Dosage: 250/50 UG, UID/QD
     Route: 055
  3. PREMARIN [Concomitant]
     Indication: HOT FLUSH
     Dosage: .625 MG, UID/QD
     Route: 048

REACTIONS (2)
  - Urticaria [Unknown]
  - Rash pruritic [Unknown]
